FAERS Safety Report 8040392-8 (Version None)
Quarter: 2012Q1

REPORT INFORMATION
  Report Type: 
  Country: None (occurrence: None)
  Receive Date: 20120111
  Receipt Date: 20111227
  Transmission Date: 20120608
  Serious: No
  Sender: FDA-Public Use
  Company Number: US-AMGEN-USASP2011068921

PATIENT
  Age: 61 Year
  Sex: Male

DRUGS (3)
  1. FOLIC ACID [Concomitant]
  2. ENBREL [Suspect]
     Indication: RHEUMATOID ARTHRITIS
     Dosage: 50 MG, QWK
     Dates: start: 20111101
  3. METHOTREXATE [Concomitant]

REACTIONS (1)
  - INJECTION SITE PAIN [None]
